FAERS Safety Report 15603658 (Version 1)
Quarter: 2018Q4

REPORT INFORMATION
  Report Type: Spontaneous
  Country: JP (occurrence: JP)
  Receive Date: 20181109
  Receipt Date: 20181109
  Transmission Date: 20190205
  Serious: Yes (Other)
  Sender: FDA-Public Use
  Company Number: JP-BAYER-2018-205991

PATIENT
  Age: 67 Year
  Sex: Male

DRUGS (1)
  1. GADOVIST [Suspect]
     Active Substance: GADOBUTROL
     Indication: SCAN WITH CONTRAST
     Dosage: DAILY DOSE 1 ML/KG
     Route: 042
     Dates: start: 20181106, end: 20181106

REACTIONS (1)
  - Somnolence [None]

NARRATIVE: CASE EVENT DATE: 20181106
